FAERS Safety Report 25090908 (Version 1)
Quarter: 2025Q1

REPORT INFORMATION
  Report Type: Spontaneous
  Country: CN (occurrence: CN)
  Receive Date: 20250318
  Receipt Date: 20250318
  Transmission Date: 20250408
  Serious: Yes (Other)
  Sender: TAKEDA
  Company Number: CN-HUTCHMED LIMITED-HMP2025CN00599

PATIENT
  Age: 51 Year
  Sex: Female
  Weight: 32 kg

DRUGS (5)
  1. FRUQUINTINIB [Suspect]
     Active Substance: FRUQUINTINIB
     Indication: Gastric cancer
     Dosage: 5 MILLIGRAM, QD
     Dates: start: 20250215, end: 20250215
  2. CADONILIMAB [Concomitant]
     Active Substance: CADONILIMAB
     Indication: Gastric cancer
     Dosage: 375 MILLIGRAM, QD
     Dates: start: 20250215, end: 20250215
  3. PACLITAXEL [Concomitant]
     Active Substance: PACLITAXEL
     Indication: Gastric cancer
     Dosage: 150 MILLIGRAM, QD
     Dates: start: 20250215, end: 20250215
  4. PACLITAXEL [Concomitant]
     Active Substance: PACLITAXEL
     Dosage: 60 MILLIGRAM, QD
     Dates: start: 20250215, end: 20250215
  5. CISPLATIN [Concomitant]
     Active Substance: CISPLATIN
     Indication: Gastric cancer
     Dosage: 30 MILLIGRAM, QD
     Dates: start: 20250215, end: 20250215

REACTIONS (2)
  - Myelosuppression [Recovering/Resolving]
  - Product use in unapproved indication [Unknown]

NARRATIVE: CASE EVENT DATE: 20250215
